FAERS Safety Report 23258434 (Version 1)
Quarter: 2023Q4

REPORT INFORMATION
  Report Type: Spontaneous
  Country: US (occurrence: None)
  Receive Date: 20231204
  Receipt Date: 20231204
  Transmission Date: 20240110
  Serious: No
  Sender: FDA-Public Use
  Company Number: 2023A262867

PATIENT

DRUGS (1)
  1. BYETTA [Suspect]
     Active Substance: EXENATIDE

REACTIONS (1)
  - Muscular weakness [Unknown]
